FAERS Safety Report 22041403 (Version 1)
Quarter: 2023Q1

REPORT INFORMATION
  Report Type: Spontaneous
  Country: AU (occurrence: AU)
  Receive Date: 20230227
  Receipt Date: 20230227
  Transmission Date: 20230417
  Serious: Yes (Hospitalization)
  Sender: FDA-Public Use
  Company Number: AU-TAKEDA-AU201904597

PATIENT
  Sex: Female

DRUGS (17)
  1. FIRAZYR [Suspect]
     Active Substance: ICATIBANT ACETATE
     Indication: Hereditary angioedema with normal C1 esterase inhibitor
     Dosage: 30 MILLIGRAM
     Route: 058
  2. FIRAZYR [Suspect]
     Active Substance: ICATIBANT ACETATE
     Indication: Hereditary angioedema with normal C1 esterase inhibitor
     Dosage: 30 MILLIGRAM
     Route: 058
  3. FIRAZYR [Suspect]
     Active Substance: ICATIBANT ACETATE
     Indication: Off label use
     Dosage: 30 MILLIGRAM, 1/WEEK
     Route: 065
  4. FIRAZYR [Suspect]
     Active Substance: ICATIBANT ACETATE
     Indication: Off label use
     Dosage: 30 MILLIGRAM, 1/WEEK
     Route: 065
  5. FIRAZYR [Suspect]
     Active Substance: ICATIBANT ACETATE
     Indication: Idiopathic angioedema
  6. FIRAZYR [Suspect]
     Active Substance: ICATIBANT ACETATE
     Indication: Idiopathic angioedema
  7. LANADELUMAB [Suspect]
     Active Substance: LANADELUMAB
     Indication: Hereditary angioedema
     Dosage: UNK
     Route: 065
  8. PROGESTERONE [Concomitant]
     Active Substance: PROGESTERONE
     Indication: Hereditary angioedema
  9. PROGESTERONE [Concomitant]
     Active Substance: PROGESTERONE
     Indication: Prophylaxis
  10. TRANEXAMIC ACID [Concomitant]
     Active Substance: TRANEXAMIC ACID
     Indication: Hereditary angioedema
  11. TRANEXAMIC ACID [Concomitant]
     Active Substance: TRANEXAMIC ACID
     Indication: Prophylaxis
  12. INDOMETHACIN [Concomitant]
     Active Substance: INDOMETHACIN
     Indication: Migraine
  13. BOTOX [Concomitant]
     Active Substance: ONABOTULINUMTOXINA
     Indication: Migraine
  14. MELATONIN [Concomitant]
     Active Substance: MELATONIN
     Indication: Migraine
  15. SINGULAIR [Concomitant]
     Active Substance: MONTELUKAST SODIUM
     Indication: Hypersensitivity
  16. DESLORATADINE [Concomitant]
     Active Substance: DESLORATADINE
     Indication: Hypersensitivity
  17. FRESH FROZEN PLASMA [Concomitant]
     Active Substance: HUMAN PLASMA

REACTIONS (5)
  - Hereditary angioedema [Not Recovered/Not Resolved]
  - Erythema [Recovering/Resolving]
  - Injection site swelling [Recovering/Resolving]
  - Off label use [Unknown]
  - Product dose omission issue [Unknown]
